FAERS Safety Report 7117728-5 (Version None)
Quarter: 2010Q4

REPORT INFORMATION
  Report Type: 
  Country: None (occurrence: None)
  Receive Date: 20101123
  Receipt Date: 20101111
  Transmission Date: 20110411
  Serious: No
  Sender: FDA-Public Use
  Company Number: US-BIOGENIDEC-2010BI036552

PATIENT
  Age: 54 Year
  Sex: Female

DRUGS (1)
  1. TYSABRI [Suspect]
     Indication: MULTIPLE SCLEROSIS
     Route: 042
     Dates: start: 20100527

REACTIONS (5)
  - INFUSION SITE DISCOLOURATION [None]
  - INFUSION SITE HAEMATOMA [None]
  - INFUSION SITE PARAESTHESIA [None]
  - INFUSION SITE PRURITUS [None]
  - INFUSION SITE SWELLING [None]
